FAERS Safety Report 18485888 (Version 2)
Quarter: 2020Q4

REPORT INFORMATION
  Report Type: Spontaneous
  Country: US (occurrence: US)
  Receive Date: 20201110
  Receipt Date: 20201213
  Transmission Date: 20210114
  Serious: Yes (Other)
  Sender: FDA-Public Use
  Company Number: NVSC2020US293792

PATIENT
  Sex: Female

DRUGS (1)
  1. COSENTYX [Suspect]
     Active Substance: SECUKINUMAB
     Indication: PRODUCT USED FOR UNKNOWN INDICATION
     Dosage: 150 MG, QW (STARTED USING COSENTYX LAST FRIDAY AT 12:00 AM)
     Route: 065
     Dates: start: 20201023

REACTIONS (2)
  - Palpitations [Unknown]
  - Angina pectoris [Unknown]

NARRATIVE: CASE EVENT DATE: 20201024
